FAERS Safety Report 24193206 (Version 2)
Quarter: 2025Q3

REPORT INFORMATION
  Report Type: Spontaneous
  Country: GB (occurrence: GB)
  Receive Date: 20240809
  Receipt Date: 20250704
  Transmission Date: 20251020
  Serious: Yes (Life-Threatening, Hospitalization, Other)
  Sender: ADVANZ PHARMA
  Company Number: GB-MLMSERVICE-20240722-PI138634-00270-1

PATIENT

DRUGS (3)
  1. PREDNISOLONE [Suspect]
     Active Substance: PREDNISOLONE
     Indication: Immunosuppressant drug therapy
  2. TACROLIMUS [Suspect]
     Active Substance: TACROLIMUS
     Indication: Immunosuppressant drug therapy
  3. TACROLIMUS [Suspect]
     Active Substance: TACROLIMUS

REACTIONS (3)
  - Small intestinal obstruction [Recovering/Resolving]
  - Pneumocystis jirovecii infection [Unknown]
  - Strongyloidiasis [Recovering/Resolving]
